FAERS Safety Report 7987595-6 (Version None)
Quarter: 2011Q4

REPORT INFORMATION
  Report Type: 
  Country: None (occurrence: None)
  Receive Date: 20111216
  Receipt Date: 20110420
  Transmission Date: 20120403
  Serious: No
  Sender: FDA-Public Use
  Company Number: US-BRISTOL-MYERS SQUIBB COMPANY-15687312

PATIENT
  Sex: Female

DRUGS (8)
  1. DILANTIN [Concomitant]
  2. ABILIFY [Suspect]
     Indication: BIPOLAR DISORDER
     Dates: start: 20110101
  3. ABILIFY [Suspect]
     Indication: POST-TRAUMATIC STRESS DISORDER
     Dates: start: 20110101
  4. AMITRIPTYLINE HCL [Concomitant]
  5. LORAZEPAM [Concomitant]
  6. IBUPROFEN (ADVIL) [Concomitant]
  7. ABILIFY [Suspect]
     Indication: SCHIZOPHRENIA
     Dates: start: 20110101
  8. TOPAMAX [Concomitant]

REACTIONS (2)
  - MUSCLE SPASMS [None]
  - MUSCLE TWITCHING [None]
